FAERS Safety Report 5622604-0 (Version None)
Quarter: 2008Q1

REPORT INFORMATION
  Report Type: 
  Country: None (occurrence: None)
  Receive Date: 20080211
  Receipt Date: 20080211
  Transmission Date: 20080703
  Serious: No
  Sender: FDA-Public Use
  Company Number: None

PATIENT
  Age: 3 Year
  Sex: Male
  Weight: 18.14 kg

DRUGS (1)
  1. ALBUTEROL [Suspect]
     Indication: ASTHMA
     Dates: start: 20060320

REACTIONS (3)
  - EPISTAXIS [None]
  - PHARYNGEAL OEDEMA [None]
  - URTICARIA [None]
